FAERS Safety Report 25631289 (Version 4)
Quarter: 2025Q4

REPORT INFORMATION
  Report Type: Report from Study
  Country: US (occurrence: US)
  Receive Date: 20250801
  Receipt Date: 20251009
  Transmission Date: 20260118
  Serious: Yes (Hospitalization)
  Sender: INSMED
  Company Number: US-INSMED, INC.-2025-02864-US

PATIENT
  Sex: Female

DRUGS (1)
  1. ARIKAYCE [Suspect]
     Active Substance: AMIKACIN
     Indication: Mycobacterium avium complex infection
     Dosage: 590 MILLIGRAM, QD
     Route: 055
     Dates: start: 20241005, end: 20250912

REACTIONS (6)
  - Peripheral venous disease [Unknown]
  - Gastrointestinal disorder [Unknown]
  - Therapy interrupted [Unknown]
  - Intentional dose omission [Unknown]
  - Device issue [Unknown]
  - Accidental underdose [Unknown]
